FAERS Safety Report 6360595-8 (Version None)
Quarter: 2009Q3

REPORT INFORMATION
  Report Type: 
  Country: None (occurrence: None)
  Receive Date: 20090915
  Receipt Date: 20090903
  Transmission Date: 20100115
  Serious: Yes (Hospitalization)
  Sender: FDA-Public Use
  Company Number: 237689K09USA

PATIENT
  Age: 33 Year
  Sex: Female
  Weight: 70 kg

DRUGS (5)
  1. REBIF [Suspect]
     Indication: MULTIPLE SCLEROSIS
     Dosage: 44 MCG, 3 IN 1 WEEKS, SUBCUTANEOUS
     Route: 058
     Dates: start: 20060417
  2. IBUPROFEN [Suspect]
     Indication: PREMEDICATION
  3. BACLOFEN [Concomitant]
  4. TYLENOL [Concomitant]
  5. PAXIL [Concomitant]

REACTIONS (6)
  - COLONIC POLYP [None]
  - GASTRIC ULCER [None]
  - INFLUENZA LIKE ILLNESS [None]
  - INJECTION SITE SCAR [None]
  - MUSCLE SPASMS [None]
  - RECTAL HAEMORRHAGE [None]
